FAERS Safety Report 26040627 (Version 1)
Quarter: 2025Q4

REPORT INFORMATION
  Report Type: Spontaneous
  Country: US (occurrence: None)
  Receive Date: 20251112
  Receipt Date: 20251112
  Transmission Date: 20260117
  Serious: No
  Sender: FDA-CTU
  Company Number: None

PATIENT
  Age: 56 Year
  Sex: Male

DRUGS (1)
  1. LENALIDOMIDE [Suspect]
     Active Substance: LENALIDOMIDE
     Indication: Plasma cell myeloma
     Dosage: 20MG QD ORAL ?
     Route: 048
     Dates: start: 20231107

REACTIONS (4)
  - Pruritus [None]
  - Erythema [None]
  - Swelling face [None]
  - Therapy interrupted [None]

NARRATIVE: CASE EVENT DATE: 20251112
